FAERS Safety Report 11275691 (Version 1)
Quarter: 2015Q3

REPORT INFORMATION
  Report Type: Report from Study
  Country: IN (occurrence: IN)
  Receive Date: 20150716
  Receipt Date: 20150716
  Transmission Date: 20151125
  Serious: Yes (Death)
  Sender: FDA-Public Use
  Company Number: PHHY2015IN083509

PATIENT
  Age: 43 Year
  Sex: Male

DRUGS (1)
  1. CERTICAN [Suspect]
     Active Substance: EVEROLIMUS
     Indication: TRANSPLANT
     Dosage: 0.75 MG, BID (0.25 MG AND 0.50 MG)
     Route: 065
     Dates: start: 20090412

REACTIONS (1)
  - Multi-organ failure [Fatal]

NARRATIVE: CASE EVENT DATE: 20150611
